FAERS Safety Report 19953845 (Version 2)
Quarter: 2021Q4

REPORT INFORMATION
  Report Type: Spontaneous
  Country: MX (occurrence: MX)
  Receive Date: 20211014
  Receipt Date: 20211018
  Transmission Date: 20220303
  Serious: Yes (Death, Hospitalization)
  Sender: FDA-Public Use
  Company Number: MX-009507513-2110MEX002627

PATIENT
  Age: 81 Year
  Sex: Male

DRUGS (11)
  1. ABRAXANE [Suspect]
     Active Substance: PACLITAXEL
     Indication: Non-small cell lung cancer stage IV
     Dosage: 100 MG/M2 (D1, D8, D15) Q3W
     Route: 065
  2. ABRAXANE [Suspect]
     Active Substance: PACLITAXEL
     Dosage: 200 MILLIGRAM
     Route: 041
     Dates: start: 20210817, end: 20210909
  3. PACLITAXEL [Suspect]
     Active Substance: PACLITAXEL
     Indication: Non-small cell lung cancer stage IV
     Dosage: AUC OF 6MG/ML/MIN, Q3W
     Route: 042
     Dates: start: 20210817, end: 20210909
  4. PACLITAXEL [Suspect]
     Active Substance: PACLITAXEL
     Dosage: 200 MILLIGRAM/SQ. METER
     Route: 042
     Dates: start: 20210930, end: 20210930
  5. KEYTRUDA [Suspect]
     Active Substance: PEMBROLIZUMAB
     Indication: Non-small cell lung cancer stage IV
     Dosage: 200 MILLIGRAM
     Route: 042
     Dates: start: 20210930, end: 20210930
  6. KEYTRUDA [Suspect]
     Active Substance: PEMBROLIZUMAB
     Dosage: 200 MILLIGRAM
     Route: 042
     Dates: start: 20210817, end: 20210909
  7. CARBOPLATIN [Suspect]
     Active Substance: CARBOPLATIN
     Indication: Non-small cell lung cancer stage IV
     Dosage: AUC OF 6 MG/ML/MIN, Q3W
     Route: 042
     Dates: start: 20210930, end: 20210930
  8. CARBOPLATIN [Suspect]
     Active Substance: CARBOPLATIN
     Dosage: 25 MILLIGRAM
     Route: 048
     Dates: start: 201901
  9. CAPTOPRIL [Concomitant]
     Active Substance: CAPTOPRIL
     Indication: Non-cardiac chest pain
     Dosage: 30 MILLIGRAM
     Route: 048
     Dates: start: 20210810
  10. MORPHINE [Concomitant]
     Active Substance: MORPHINE
     Indication: Product used for unknown indication
     Route: 065
  11. SENNOSIDES [Concomitant]
     Active Substance: SENNOSIDES
     Indication: Product used for unknown indication
     Route: 065

REACTIONS (1)
  - Septic shock [Fatal]

NARRATIVE: CASE EVENT DATE: 20211007
